FAERS Safety Report 19001547 (Version 2)
Quarter: 2021Q2

REPORT INFORMATION
  Report Type: Spontaneous
  Country: US (occurrence: US)
  Receive Date: 20210312
  Receipt Date: 20210503
  Transmission Date: 20210717
  Serious: No
  Sender: FDA-Public Use
  Company Number: US-FARMAPROD-202010-1363

PATIENT
  Age: 70 Year
  Sex: Female
  Weight: 52.66 kg

DRUGS (21)
  1. BORTEZOMIB. [Concomitant]
     Active Substance: BORTEZOMIB
     Dosage: VIAL
  2. XGEVA [Concomitant]
     Active Substance: DENOSUMAB
     Dosage: 20 MG/1.7 VIAL
  3. SYNTHROID [Concomitant]
     Active Substance: LEVOTHYROXINE SODIUM
  4. OMEPRAZOLE. [Concomitant]
     Active Substance: OMEPRAZOLE
     Dosage: DELAY RELEASE CAPSULE
  5. ZYRTEC [Concomitant]
     Active Substance: CETIRIZINE HYDROCHLORIDE
  6. SIMBRINZA [Concomitant]
     Active Substance: BRIMONIDINE TARTRATE\BRINZOLAMIDE
     Dosage: 1 %?0.2 % DROPS SUSPENSION
  7. VAGIFEM [Concomitant]
     Active Substance: ESTRADIOL
  8. MURO?128 [Concomitant]
  9. ASPIRINE [Concomitant]
     Active Substance: ASPIRIN
  10. LATANOPROST. [Concomitant]
     Active Substance: LATANOPROST
  11. RESTASIS [Concomitant]
     Active Substance: CYCLOSPORINE
  12. REVLIMID [Concomitant]
     Active Substance: LENALIDOMIDE
  13. VALIUM [Concomitant]
     Active Substance: DIAZEPAM
  14. OXERVATE [Suspect]
     Active Substance: CENEGERMIN-BKBJ
     Indication: NEUROTROPHIC KERATOPATHY
     Route: 047
     Dates: start: 20200930, end: 20201125
  15. ACICLOVIR [Concomitant]
     Active Substance: ACYCLOVIR
  16. GABAPENTIN. [Concomitant]
     Active Substance: GABAPENTIN
  17. RELPAX [Concomitant]
     Active Substance: ELETRIPTAN HYDROBROMIDE
  18. FENTANYL. [Concomitant]
     Active Substance: FENTANYL
     Dosage: 100 MCG/HR PATCH TD72
  19. OXERVATE [Suspect]
     Active Substance: CENEGERMIN-BKBJ
     Indication: HYPOAESTHESIA EYE
     Route: 047
     Dates: start: 20210211
  20. TIZANIDINE HCL [Concomitant]
     Active Substance: TIZANIDINE HYDROCHLORIDE
  21. COLESTIPOL HCL [Concomitant]
     Active Substance: COLESTIPOL HYDROCHLORIDE

REACTIONS (9)
  - Eyelid pain [Unknown]
  - Lacrimation increased [Unknown]
  - Dry mouth [Unknown]
  - Photophobia [Recovering/Resolving]
  - Intentional product misuse [Unknown]
  - Product dose omission issue [Recovered/Resolved]
  - Eye pain [Unknown]
  - Off label use [Unknown]
  - Disease recurrence [Unknown]

NARRATIVE: CASE EVENT DATE: 20201015
